FAERS Safety Report 24180312 (Version 1)
Quarter: 2024Q3

REPORT INFORMATION
  Report Type: Spontaneous
  Country: CH (occurrence: CH)
  Receive Date: 20240806
  Receipt Date: 20240806
  Transmission Date: 20241017
  Serious: Yes (Other)
  Sender: GLAXOSMITHKLINE
  Company Number: CH-GLAXOSMITHKLINE-CH2024EME092555

PATIENT

DRUGS (11)
  1. TRELEGY ELLIPTA [Suspect]
     Active Substance: FLUTICASONE FUROATE\UMECLIDINIUM BROMIDE\VILANTEROL TRIFENATATE
     Indication: Eosinophilic granulomatosis with polyangiitis
     Dosage: UNK UNK, QD
  2. NUCALA [Suspect]
     Active Substance: MEPOLIZUMAB
     Indication: Eosinophilic granulomatosis with polyangiitis
     Dosage: 300 MG, MO
     Dates: start: 20240220
  3. NUCALA [Suspect]
     Active Substance: MEPOLIZUMAB
     Dosage: 300 MG
     Dates: start: 20240321
  4. PANTOZOL [Concomitant]
     Active Substance: PANTOPRAZOLE SODIUM
     Indication: Product used for unknown indication
     Dosage: 20 MG, QD
  5. PREDNISONE [Concomitant]
     Active Substance: PREDNISONE
     Indication: Product used for unknown indication
     Dosage: 50 MG
     Dates: start: 20240216
  6. PREDNISONE [Concomitant]
     Active Substance: PREDNISONE
     Dosage: 50 MG
     Dates: start: 20240222
  7. PREDNISONE [Concomitant]
     Active Substance: PREDNISONE
     Dosage: 40 MG
     Dates: start: 20240315
  8. PREDNISONE [Concomitant]
     Active Substance: PREDNISONE
     Dosage: 30 MG
     Dates: start: 20240429
  9. PREDNISONE [Concomitant]
     Active Substance: PREDNISONE
     Dosage: 10 MG, QD
  10. SYMBICORT [Concomitant]
     Active Substance: BUDESONIDE\FORMOTEROL FUMARATE DIHYDRATE
     Indication: Product used for unknown indication
     Dosage: UNK UNK, BID (TH 200/6)
  11. BACTRIM [Concomitant]
     Active Substance: SULFAMETHOXAZOLE\TRIMETHOPRIM
     Indication: Product used for unknown indication
     Dosage: UNK (3 X PER WEEK)

REACTIONS (16)
  - Pulmonary alveolar haemorrhage [Unknown]
  - Electrocardiogram repolarisation abnormality [Unknown]
  - Sleep disorder due to a general medical condition [Unknown]
  - Thinking abnormal [Unknown]
  - Microcytic anaemia [Unknown]
  - Sinusitis [Recovered/Resolved]
  - Iron deficiency [Unknown]
  - Folate deficiency [Unknown]
  - Productive cough [Not Recovered/Not Resolved]
  - Obstructive airways disorder [Unknown]
  - Fatigue [Unknown]
  - Dyspnoea exertional [Recovering/Resolving]
  - Lung hyperinflation [Unknown]
  - C-reactive protein increased [Unknown]
  - Drug ineffective [Unknown]
  - Off label use [Unknown]

NARRATIVE: CASE EVENT DATE: 20240220
